FAERS Safety Report 25023475 (Version 1)
Quarter: 2025Q1

REPORT INFORMATION
  Report Type: Spontaneous
  Country: US (occurrence: None)
  Receive Date: 20250227
  Receipt Date: 20250227
  Transmission Date: 20250409
  Serious: Yes (Other)
  Sender: FDA-CTU
  Company Number: None

PATIENT
  Age: 80 Year
  Sex: Female
  Weight: 46.35 kg

DRUGS (7)
  1. RESTASIS [Suspect]
     Active Substance: CYCLOSPORINE
     Indication: Dry eye
     Dosage: OTHER STRENGTH : 0.05% UNIT DOSE;?FREQUENCY : EVERY 12 HOURS;?
     Route: 047
     Dates: start: 20240918, end: 20250220
  2. ELIQUIS [Concomitant]
     Active Substance: APIXABAN
  3. FAMOTIDINE [Concomitant]
     Active Substance: FAMOTIDINE
  4. MINERALS\VITAMINS [Concomitant]
     Active Substance: MINERALS\VITAMINS
  5. B vitamin [Concomitant]
  6. ZYRTEC [Concomitant]
     Active Substance: CETIRIZINE HYDROCHLORIDE
  7. REFRESH SOLUTION NOS [Concomitant]
     Active Substance: CARBOXYMETHYLCELLULOSE SODIUM\GLYCERIN

REACTIONS (5)
  - Oropharyngeal pain [None]
  - Sinusitis [None]
  - Pneumonia bacterial [None]
  - Respiratory failure [None]
  - Sepsis [None]

NARRATIVE: CASE EVENT DATE: 20241108
